FAERS Safety Report 13595851 (Version 2)
Quarter: 2019Q1

REPORT INFORMATION
  Report Type: Spontaneous
  Country: US (occurrence: US)
  Receive Date: 20170531
  Receipt Date: 20190131
  Transmission Date: 20190417
  Serious: No
  Sender: FDA-Public Use
  Company Number: US-JNJFOC-20170513115

PATIENT
  Age: 19 Month
  Sex: Female

DRUGS (2)
  1. MOTRIN INFANTS [Suspect]
     Active Substance: IBUPROFEN
     Indication: EAR INFECTION
     Dosage: 3.75 ML, ONCE
     Route: 065
     Dates: start: 20170509
  2. MOTRIN INFANTS [Suspect]
     Active Substance: IBUPROFEN
     Indication: PAIN
     Dosage: 3.75 ML, ONCE
     Route: 065
     Dates: start: 20170509

REACTIONS (3)
  - Drug administered in wrong device [Unknown]
  - Product use in unapproved indication [Unknown]
  - Off label use [Unknown]

NARRATIVE: CASE EVENT DATE: 20170509
